FAERS Safety Report 4481960-X (Version None)
Quarter: 2004Q4

REPORT INFORMATION
  Report Type: 
  Country: None (occurrence: None)
  Receive Date: 20041020
  Receipt Date: 20041001
  Transmission Date: 20050328
  Serious: Yes (Hospitalization)
  Sender: FDA-Public Use
  Company Number: DE_041014397

PATIENT
  Age: 57 Year
  Sex: Female

DRUGS (3)
  1. FORTEO [Suspect]
     Indication: OSTEOPOROSIS
     Dosage: 20 UG/1 DAY
     Dates: start: 20040923
  2. ANTIARRHYTHMIC  AGENTS [Concomitant]
  3. BENZODIAZEPINE [Concomitant]

REACTIONS (2)
  - ARRHYTHMIA [None]
  - CONDITION AGGRAVATED [None]
